FAERS Safety Report 13936672 (Version 1)
Quarter: 2017Q3

REPORT INFORMATION
  Report Type: Spontaneous
  Country: JP (occurrence: JP)
  Receive Date: 20170905
  Receipt Date: 20170905
  Transmission Date: 20171127
  Serious: No
  Sender: FDA-Public Use
  Company Number: JP-ELI_LILLY_AND_COMPANY-JP201709000018

PATIENT
  Age: 64 Year
  Sex: Male
  Weight: 45 kg

DRUGS (12)
  1. TENELIA [Concomitant]
     Active Substance: TENELIGLIPTIN
     Route: 048
  2. UBRETID [Concomitant]
     Active Substance: DISTIGMINE BROMIDE
     Route: 048
  3. DICLOFENAC                         /00372302/ [Concomitant]
     Active Substance: DICLOFENAC
     Route: 054
  4. LOXOPROFEN                         /00890702/ [Concomitant]
     Active Substance: LOXOPROFEN
     Route: 048
  5. LYRICA [Concomitant]
     Active Substance: PREGABALIN
     Route: 048
  6. NEXIUM [Concomitant]
     Active Substance: ESOMEPRAZOLE MAGNESIUM
     Route: 048
  7. INSULIN GLARGINE BS [Concomitant]
     Route: 058
  8. DULOXETINE HYDROCHLORIDE. [Suspect]
     Active Substance: DULOXETINE HYDROCHLORIDE
     Indication: DIABETIC GANGRENE
     Dosage: 20 MG, DAILY
     Route: 048
     Dates: start: 20170302, end: 20170321
  9. CALONAL [Concomitant]
     Active Substance: ACETAMINOPHEN
     Dosage: UNK
     Route: 048
     Dates: end: 201703
  10. PLETAAL [Concomitant]
     Active Substance: CILOSTAZOL
     Route: 048
  11. EBRANTIL                           /00631802/ [Concomitant]
     Route: 048
  12. ROZEREM [Concomitant]
     Active Substance: RAMELTEON
     Route: 048

REACTIONS (1)
  - Liver disorder [Recovered/Resolved]

NARRATIVE: CASE EVENT DATE: 20170314
